FAERS Safety Report 12037357 (Version 1)
Quarter: 2016Q1

REPORT INFORMATION
  Report Type: Spontaneous
  Country: US (occurrence: None)
  Receive Date: 20160205
  Receipt Date: 20160205
  Transmission Date: 20160526
  Serious: No
  Sender: FDA-Public Use
  Company Number: None

PATIENT
  Age: 35 Year
  Sex: Male
  Weight: 72.58 kg

DRUGS (1)
  1. AMBIEN 10 MG GENERIC [Suspect]
     Active Substance: ZOLPIDEM TARTRATE
     Indication: INITIAL INSOMNIA
     Dosage: 1 PILL ONCE DAILY TAKEN BY MOUTH
     Route: 048
     Dates: start: 20151031, end: 20160201

REACTIONS (8)
  - Somnambulism [None]
  - Neck pain [None]
  - Fall [None]
  - Arthralgia [None]
  - Haemorrhage [None]
  - Musculoskeletal pain [None]
  - Thermal burn [None]
  - Limb injury [None]
